FAERS Safety Report 25223580 (Version 5)
Quarter: 2025Q3

REPORT INFORMATION
  Report Type: Report from Study
  Country: CA (occurrence: CA)
  Receive Date: 20250422
  Receipt Date: 20250808
  Transmission Date: 20251021
  Serious: Yes (Other)
  Sender: JOHNSON AND JOHNSON
  Company Number: CA-JNJFOC-20250205445

PATIENT
  Age: 65 Year
  Sex: Male

DRUGS (1)
  1. SIMPONI [Suspect]
     Active Substance: GOLIMUMAB
     Indication: Ankylosing spondylitis
     Dosage: LAST ADMINISTERED ON 8- MAR-2025
     Route: 058
     Dates: start: 20250108

REACTIONS (6)
  - Kidney infection [Recovered/Resolved]
  - Ankylosing spondylitis [Unknown]
  - Cystitis [Recovered/Resolved]
  - Pruritus [Unknown]
  - Lacrimation increased [Unknown]
  - Blood pressure increased [Unknown]
